FAERS Safety Report 9474265 (Version 1)
Quarter: 2013Q3

REPORT INFORMATION
  Report Type: Spontaneous
  Country: CN (occurrence: CN)
  Receive Date: 20130823
  Receipt Date: 20130823
  Transmission Date: 20140515
  Serious: Yes (Other)
  Sender: FDA-Public Use
  Company Number: CN-BRISTOL-MYERS SQUIBB COMPANY-19198977

PATIENT
  Age: 31 Year
  Sex: Female
  Weight: 64 kg

DRUGS (1)
  1. METFORMIN HCL [Suspect]
     Indication: WEIGHT DECREASED
     Route: 048
     Dates: start: 20101101, end: 20111101

REACTIONS (2)
  - Hepatic enzyme increased [Recovered/Resolved]
  - Off label use [Unknown]
